FAERS Safety Report 9692010 (Version 2)
Quarter: 2013Q4

REPORT INFORMATION
  Report Type: Spontaneous
  Country: BR (occurrence: BR)
  Receive Date: 20131118
  Receipt Date: 20131118
  Transmission Date: 20140711
  Serious: Yes (Hospitalization, Other)
  Sender: FDA-Public Use
  Company Number: BR-BIOGENIDEC-2013BI008867

PATIENT
  Age: 71 Year
  Sex: Female
  Weight: 85 kg

DRUGS (5)
  1. AVONEX [Suspect]
     Indication: MULTIPLE SCLEROSIS
     Route: 030
     Dates: start: 2009, end: 20120831
  2. AVONEX [Suspect]
     Indication: MULTIPLE SCLEROSIS
     Route: 030
     Dates: start: 20120907
  3. ACETYLSALICYLIC ACID [Concomitant]
  4. SIMVASTATIN [Concomitant]
  5. PREDNISONE [Concomitant]

REACTIONS (7)
  - Cerebrovascular accident [Unknown]
  - Multiple sclerosis relapse [Recovered/Resolved]
  - Balance disorder [Recovered/Resolved]
  - General physical health deterioration [Unknown]
  - Dementia Alzheimer^s type [Unknown]
  - Motor dysfunction [Unknown]
  - Asthenia [Recovered/Resolved]
